FAERS Safety Report 9848261 (Version 1)
Quarter: 2014Q1

REPORT INFORMATION
  Report Type: Spontaneous
  Country: US (occurrence: None)
  Receive Date: 20140127
  Receipt Date: 20140127
  Transmission Date: 20141002
  Serious: Yes (Other)
  Sender: FDA-Public Use
  Company Number: None

PATIENT
  Age: 59 Year
  Sex: Female
  Weight: 63.5 kg

DRUGS (2)
  1. NIACIN [Suspect]
     Indication: BLOOD CHOLESTEROL INCREASED
     Route: 048
     Dates: start: 20131205, end: 20131208
  2. NIASPAN [Concomitant]

REACTIONS (6)
  - Product substitution issue [None]
  - Hot flush [None]
  - Erythema [None]
  - Pruritus [None]
  - Urticaria [None]
  - Product formulation issue [None]
